FAERS Safety Report 6437907-X (Version None)
Quarter: 2009Q4

REPORT INFORMATION
  Report Type: 
  Country: None (occurrence: None)
  Receive Date: 20091112
  Receipt Date: 20081208
  Transmission Date: 20100525
  Serious: No
  Sender: FDA-Public Use
  Company Number: US-ASTRAZENECA-2009UW17650

PATIENT
  Age: 81 Year
  Sex: Female

DRUGS (1)
  1. PRILOSEC OTC [Suspect]
     Route: 048

REACTIONS (2)
  - ERUCTATION [None]
  - GASTROINTESTINAL PAIN [None]
